FAERS Safety Report 9192354 (Version 2)
Quarter: 2013Q2

REPORT INFORMATION
  Report Type: Report from Study
  Country: CA (occurrence: CA)
  Receive Date: 20130327
  Receipt Date: 20130405
  Transmission Date: 20140414
  Serious: Yes (Other)
  Sender: FDA-Public Use
  Company Number: CA-JNJFOC-20130311745

PATIENT
  Age: 56 Year
  Sex: Female
  Weight: 63.4 kg

DRUGS (4)
  1. REMICADE [Suspect]
     Indication: CROHN^S DISEASE
     Route: 042
     Dates: start: 20120410
  2. AZATHIOPRINE [Concomitant]
     Route: 065
  3. ALENDRONATE [Concomitant]
     Route: 065
  4. TAMOXIFEN [Concomitant]
     Route: 065

REACTIONS (2)
  - Neck mass [Unknown]
  - Thyroid disorder [Unknown]
